FAERS Safety Report 9800118 (Version 2)
Quarter: 2014Q1

REPORT INFORMATION
  Report Type: Spontaneous
  Country: US (occurrence: US)
  Receive Date: 20140106
  Receipt Date: 20140106
  Transmission Date: 20141002
  Serious: No
  Sender: FDA-Public Use
  Company Number: US-GILEAD-2010-0032476

PATIENT
  Age: 39 Year
  Sex: Female

DRUGS (8)
  1. LETAIRIS [Suspect]
     Indication: PULMONARY ARTERIAL HYPERTENSION
     Route: 048
     Dates: start: 20100921
  2. ADCIRCA [Concomitant]
  3. WARFARIN [Concomitant]
  4. OXYGEN [Concomitant]
  5. ZYRTEC [Concomitant]
  6. OMEPRAZOLE [Concomitant]
  7. FERROUS SULFATE [Concomitant]
  8. VITAMIN C [Concomitant]

REACTIONS (3)
  - Dizziness [Recovered/Resolved]
  - Vision blurred [Recovered/Resolved]
  - Hypotension [Recovered/Resolved]
